FAERS Safety Report 10341608 (Version 1)
Quarter: 2014Q3

REPORT INFORMATION
  Report Type: Spontaneous
  Country: ES (occurrence: ES)
  Receive Date: 20140725
  Receipt Date: 20140725
  Transmission Date: 20150326
  Serious: Yes (Hospitalization)
  Sender: FDA-Public Use
  Company Number: ES-RANBAXY-2014R1-83551

PATIENT
  Age: 36 Year
  Sex: Female
  Weight: 35 kg

DRUGS (8)
  1. BUPRENORPHINE [Concomitant]
     Active Substance: BUPRENORPHINE
     Indication: OSTEOGENESIS IMPERFECTA
     Route: 065
  2. FENTANYL. [Concomitant]
     Active Substance: FENTANYL
     Dosage: UNK
     Route: 065
  3. MORPHINE [Suspect]
     Active Substance: MORPHINE
     Indication: PAIN
     Dosage: 600 MG, DAILY
     Route: 048
  4. TRYPTIZOL [Concomitant]
     Active Substance: AMITRIPTYLINE HYDROCHLORIDE
     Indication: OSTEOGENESIS IMPERFECTA
     Route: 065
  5. CLONAZEPAM. [Concomitant]
     Active Substance: CLONAZEPAM
     Indication: OSTEOGENESIS IMPERFECTA
     Route: 065
  6. FENTANYL. [Concomitant]
     Active Substance: FENTANYL
     Indication: OSTEOGENESIS IMPERFECTA
     Route: 062
  7. PREGABALIN. [Concomitant]
     Active Substance: PREGABALIN
     Indication: OSTEOGENESIS IMPERFECTA
     Route: 065
  8. MORPHINE [Suspect]
     Active Substance: MORPHINE
     Indication: PAIN
     Dosage: 220 MG, DAILY
     Route: 058

REACTIONS (7)
  - Somnolence [Recovered/Resolved]
  - Abdominal distension [Recovered/Resolved]
  - Hyperaesthesia [Recovered/Resolved]
  - Constipation [Recovered/Resolved]
  - Drug withdrawal syndrome [Recovered/Resolved]
  - Diarrhoea [Recovered/Resolved]
  - Pain [Recovered/Resolved]
